FAERS Safety Report 4885370-2 (Version None)
Quarter: 2005Q4

REPORT INFORMATION
  Report Type: 
  Country: None (occurrence: None)
  Receive Date: 20051222
  Receipt Date: 20041207
  Transmission Date: 20060501
  Serious: No
  Sender: FDA-Public Use
  Company Number: 04H-163-0283197-00

PATIENT
  Age: 26 Year
  Sex: Female

DRUGS (1)
  1. MORPHINE SULFATE INJ [Suspect]
     Indication: PAIN MANAGEMENT
     Dosage: CONT. INF 8 MG/HR, LOADING
     Dates: start: 20041001

REACTIONS (2)
  - MEDICATION ERROR [None]
  - OVERDOSE [None]
